FAERS Safety Report 10955696 (Version 2)
Quarter: 2016Q4

REPORT INFORMATION
  Report Type: Report from Study
  Country: GB (occurrence: GB)
  Receive Date: 20150326
  Receipt Date: 20161004
  Transmission Date: 20170206
  Serious: Yes (Other)
  Sender: FDA-Public Use
  Company Number: GB-ROCHE-1555568

PATIENT

DRUGS (2)
  1. ALTEPLASE [Suspect]
     Active Substance: ALTEPLASE
     Indication: ISCHAEMIC STROKE
     Dosage: 0.9 MG PER KG TO A MAXIMUM 90 MG, WITH 10% OF DOSE AS INITIAL BOLUS
     Route: 040
  2. ALTEPLASE [Suspect]
     Active Substance: ALTEPLASE
     Dosage: 0.9 MG PER KG TO A MAXIMUM 90 MG, WITH 10% OF DOSE AS INITIAL BOLUS
     Route: 042

REACTIONS (1)
  - Malignant glioma [Unknown]
